FAERS Safety Report 9995590 (Version 2)
Quarter: 2014Q1

REPORT INFORMATION
  Report Type: Spontaneous
  Country: US (occurrence: None)
  Receive Date: 20140306
  Receipt Date: 20140312
  Transmission Date: 20141002
  Serious: Yes (Hospitalization)
  Sender: FDA-Public Use
  Company Number: UTC-045186

PATIENT
  Age: 80 Year
  Sex: Male

DRUGS (1)
  1. TYVASO [Suspect]
     Indication: PULMONARY ARTERIAL HYPERTENSION
     Dosage: 216 MCG (54 MCG, 4 IN 1 D),INHALATION
     Route: 055
     Dates: start: 20120208

REACTIONS (5)
  - Asthenia [None]
  - Pulmonary arterial hypertension [None]
  - Chronic obstructive pulmonary disease [None]
  - Cardiac failure congestive [None]
  - Epistaxis [None]
